FAERS Safety Report 5254558-3 (Version None)
Quarter: 2007Q1

REPORT INFORMATION
  Report Type: 
  Country: None (occurrence: None)
  Receive Date: 20070302
  Receipt Date: 20070219
  Transmission Date: 20070707
  Serious: Yes (Other)
  Sender: FDA-Public Use
  Company Number: CH-PFIZER INC-2007013127

PATIENT
  Sex: Female

DRUGS (5)
  1. DIFLUCAN [Suspect]
     Indication: MENINGITIS
     Route: 048
     Dates: start: 20070123, end: 20070206
  2. TAZOBAC [Concomitant]
     Route: 042
     Dates: start: 20070203, end: 20070206
  3. METRONIDAZOLE [Concomitant]
     Route: 048
  4. PRIMIDONE [Concomitant]
     Route: 048
     Dates: start: 20061201, end: 20070206
  5. NOVALGIN [Concomitant]
     Route: 042
     Dates: start: 20070202, end: 20070206

REACTIONS (2)
  - ADRENAL INSUFFICIENCY [None]
  - HYPOGLYCAEMIA [None]
